FAERS Safety Report 13807319 (Version 3)
Quarter: 2017Q3

REPORT INFORMATION
  Report Type: Report from Study
  Country: US (occurrence: US)
  Receive Date: 20170728
  Receipt Date: 20170922
  Transmission Date: 20171127
  Serious: Yes (Hospitalization, Other)
  Sender: FDA-Public Use
  Company Number: US-AMGEN-USASL2017090321

PATIENT
  Age: 51 Year
  Sex: Female

DRUGS (1)
  1. REPATHA [Suspect]
     Active Substance: EVOLOCUMAB
     Indication: BLOOD CHOLESTEROL INCREASED
     Dosage: 140 MG, Q2WK
     Route: 058
     Dates: start: 2017

REACTIONS (21)
  - Pruritus [Unknown]
  - Fatigue [Unknown]
  - Myalgia [Unknown]
  - Rash [Unknown]
  - Influenza like illness [Recovered/Resolved]
  - Skin ulcer [Unknown]
  - Hyperhidrosis [Unknown]
  - Vomiting [Unknown]
  - Diarrhoea [Unknown]
  - Dyspnoea [Unknown]
  - Burning sensation [Unknown]
  - Arthralgia [Unknown]
  - Pain of skin [Unknown]
  - Oropharyngeal pain [Unknown]
  - Dysphagia [Unknown]
  - Alopecia [Unknown]
  - Diabetes mellitus [Unknown]
  - Non-cardiac chest pain [Unknown]
  - Feeling cold [Unknown]
  - Feeling hot [Unknown]
  - Goitre [Unknown]

NARRATIVE: CASE EVENT DATE: 2017
